FAERS Safety Report 6199852-7 (Version None)
Quarter: 2009Q2

REPORT INFORMATION
  Report Type: 
  Country: None (occurrence: None)
  Receive Date: 20090520
  Receipt Date: 20090520
  Transmission Date: 20091009
  Serious: Yes (Other)
  Sender: FDA-Public Use
  Company Number: None

PATIENT
  Age: 46 Year
  Sex: Female
  Weight: 86.1834 kg

DRUGS (2)
  1. CYMBALTA [Suspect]
     Indication: DEPRESSION
     Dosage: 60 MG. 1 X A DAY PO
     Route: 048
     Dates: start: 20040110, end: 20040310
  2. CYMBALTA [Suspect]
     Indication: DEPRESSION
     Dosage: 30 MG. 1 X A DAY PO
     Route: 048
     Dates: start: 20040311, end: 20090515

REACTIONS (3)
  - DIZZINESS [None]
  - DRUG WITHDRAWAL SYNDROME [None]
  - PARAESTHESIA [None]
